FAERS Safety Report 5143143-X (Version None)
Quarter: 2006Q4

REPORT INFORMATION
  Report Type: 
  Country: None (occurrence: None)
  Receive Date: 20061103
  Receipt Date: 20061025
  Transmission Date: 20070319
  Serious: Yes (Other)
  Sender: FDA-Public Use
  Company Number: 2006UW20763

PATIENT
  Age: 62 Year
  Sex: Female

DRUGS (5)
  1. AMITRIPTYLINE HCL [Suspect]
     Route: 048
  2. ATENOLOL [Suspect]
     Route: 048
  3. SEROQUEL [Suspect]
     Route: 048
  4. ADALAT [Concomitant]
  5. AVALIDE [Concomitant]

REACTIONS (6)
  - ASPIRATION [None]
  - BRADYCARDIA [None]
  - DEPRESSED LEVEL OF CONSCIOUSNESS [None]
  - MUSCLE TWITCHING [None]
  - PNEUMONIA [None]
  - RESPIRATORY ARREST [None]
